FAERS Safety Report 8501756-9 (Version None)
Quarter: 2012Q3

REPORT INFORMATION
  Report Type: 
  Country: None (occurrence: None)
  Receive Date: 20120711
  Receipt Date: 20120702
  Transmission Date: 20120928
  Serious: No
  Sender: FDA-Public Use
  Company Number: US-BIOGENIDEC-2012BI023642

PATIENT
  Sex: Female

DRUGS (3)
  1. BACLOFEN [Concomitant]
     Indication: MUSCLE SPASMS
  2. AVONEX [Suspect]
     Indication: MULTIPLE SCLEROSIS
     Route: 030
     Dates: start: 20040903, end: 20050101
  3. AVONEX [Suspect]
     Route: 030
     Dates: start: 20050101

REACTIONS (5)
  - BLADDER PAIN [None]
  - GAIT DISTURBANCE [None]
  - WEIGHT DECREASED [None]
  - INFLUENZA LIKE ILLNESS [None]
  - RESTLESS LEGS SYNDROME [None]
